FAERS Safety Report 25324961 (Version 1)
Quarter: 2025Q2

REPORT INFORMATION
  Report Type: Spontaneous
  Country: US (occurrence: US)
  Receive Date: 20250516
  Receipt Date: 20250516
  Transmission Date: 20250716
  Serious: No
  Sender: BAUSCH AND LOMB
  Company Number: US-BAUSCHBL-2025BNL008308

PATIENT
  Age: 69 Year
  Sex: Female

DRUGS (1)
  1. MIEBO [Suspect]
     Active Substance: PERFLUOROHEXYLOCTANE
     Indication: Product used for unknown indication
     Dosage: USE THE RX 4 TIMES A DAY
     Route: 047
     Dates: start: 202504

REACTIONS (7)
  - Eye pain [Unknown]
  - Product packaging quantity issue [Unknown]
  - Product complaint [Unknown]
  - Liquid product physical issue [Unknown]
  - Accidental exposure to product [Unknown]
  - Exposure via skin contact [Unknown]
  - Product communication issue [Unknown]
